FAERS Safety Report 15689288 (Version 1)
Quarter: 2018Q4

REPORT INFORMATION
  Report Type: Spontaneous
  Country: BR (occurrence: BR)
  Receive Date: 20181205
  Receipt Date: 20181205
  Transmission Date: 20190205
  Serious: Yes (Other)
  Sender: FDA-Public Use
  Company Number: BR-SA-2017SA245577

PATIENT
  Age: 26 Year
  Sex: Female
  Weight: 60 kg

DRUGS (3)
  1. CLEXANE [Suspect]
     Active Substance: ENOXAPARIN SODIUM
     Indication: THROMBOSIS
     Dosage: BID
     Route: 058
     Dates: start: 20171123
  2. ASPIRINA [Concomitant]
     Active Substance: ASPIRIN
     Dosage: 1 DF,QD
     Route: 048
     Dates: start: 201710
  3. CLEXANE [Suspect]
     Active Substance: ENOXAPARIN SODIUM
     Dosage: 60 MG,UNK
     Route: 058
     Dates: start: 20171123

REACTIONS (3)
  - Exposure during pregnancy [Unknown]
  - Unevaluable event [Unknown]
  - Foetal malformation [Unknown]
